FAERS Safety Report 11104940 (Version 34)
Quarter: 2016Q4

REPORT INFORMATION
  Report Type: Report from Study
  Country: KR (occurrence: KR)
  Receive Date: 20150511
  Receipt Date: 20161222
  Transmission Date: 20170206
  Serious: Yes (Hospitalization, Other)
  Sender: FDA-Public Use
  Company Number: DE-ACTELION-A-US2015-117813

PATIENT
  Age: 28 Year
  Sex: Male

DRUGS (1)
  1. VENTAVIS [Suspect]
     Active Substance: ILOPROST
     Indication: PULMONARY ARTERIAL HYPERTENSION
     Dosage: 6 ML, TOTAL DAILY DOSE
     Route: 055
     Dates: start: 20121220

REACTIONS (52)
  - Dizziness postural [Unknown]
  - Flank pain [Unknown]
  - Otitis media chronic [Unknown]
  - Vomiting [Not Recovered/Not Resolved]
  - Nasopharyngitis [Not Recovered/Not Resolved]
  - Blood pressure systolic decreased [Recovered/Resolved]
  - Pyrexia [Recovered/Resolved]
  - Discomfort [Not Recovered/Not Resolved]
  - Glaucoma [Unknown]
  - Ventricular hypertrophy [Unknown]
  - Pneumonia [Recovering/Resolving]
  - Nausea [Recovering/Resolving]
  - Diarrhoea [Not Recovered/Not Resolved]
  - Somnambulism [Not Recovered/Not Resolved]
  - Vision blurred [Unknown]
  - Amnesia [Unknown]
  - General physical health deterioration [Unknown]
  - Chest pain [Unknown]
  - Dyspnoea [Recovered/Resolved]
  - Dizziness [Not Recovered/Not Resolved]
  - Headache [Unknown]
  - Myopia [Not Recovered/Not Resolved]
  - Fall [Unknown]
  - Nightmare [Unknown]
  - Eating disorder [Recovering/Resolving]
  - Pulmonary arterial pressure increased [Unknown]
  - Visual impairment [Unknown]
  - Hypoaesthesia [Not Recovered/Not Resolved]
  - Pyrexia [Not Recovered/Not Resolved]
  - Diarrhoea [Not Recovered/Not Resolved]
  - Mastication disorder [Unknown]
  - Heart rate decreased [Unknown]
  - Poor quality sleep [Not Recovered/Not Resolved]
  - Haematemesis [Unknown]
  - Vomiting [Not Recovered/Not Resolved]
  - Chest pain [Not Recovered/Not Resolved]
  - Tooth injury [Unknown]
  - Procedural pain [Recovered/Resolved]
  - Procedural pain [Unknown]
  - Astigmatism [Not Recovered/Not Resolved]
  - Dyspepsia [Unknown]
  - Tinnitus [Not Recovered/Not Resolved]
  - Headache [Not Recovered/Not Resolved]
  - Hypotension [Recovered/Resolved]
  - Oxygen saturation decreased [Recovered/Resolved]
  - Dyspnoea [Recovered/Resolved]
  - Pulmonary arterial hypertension [Unknown]
  - Noninfective gingivitis [Unknown]
  - Gait disturbance [Unknown]
  - Emotional distress [Unknown]
  - Weight decreased [Not Recovered/Not Resolved]
  - Bacterial test positive [Unknown]

NARRATIVE: CASE EVENT DATE: 2013
